FAERS Safety Report 5573557-5 (Version None)
Quarter: 2007Q4

REPORT INFORMATION
  Report Type: 
  Country: None (occurrence: None)
  Receive Date: 20071226
  Receipt Date: 20071212
  Transmission Date: 20080405
  Serious: Yes (Life-Threatening, Hospitalization, Other)
  Sender: FDA-Public Use
  Company Number: GB-TEVA-165340ISR

PATIENT
  Age: 24 Year
  Sex: Male

DRUGS (3)
  1. SIMVASTATIN [Suspect]
     Route: 048
     Dates: start: 20040416
  2. NIFEDIPINE [Suspect]
     Route: 048
     Dates: start: 20020801
  3. SIROLIMUS [Suspect]
     Route: 048
     Dates: start: 20030818

REACTIONS (1)
  - NEPHROTIC SYNDROME [None]
